FAERS Safety Report 20822100 (Version 1)
Quarter: 2022Q2

REPORT INFORMATION
  Report Type: Spontaneous
  Country: US (occurrence: US)
  Receive Date: 20220512
  Receipt Date: 20220512
  Transmission Date: 20220721
  Serious: No
  Sender: FDA-Public Use
  Company Number: US-PFIZER INC-202200495499

PATIENT
  Age: 42 Year

DRUGS (1)
  1. XELJANZ [Suspect]
     Active Substance: TOFACITINIB CITRATE
     Dosage: 5 MG

REACTIONS (4)
  - Loss of personal independence in daily activities [Unknown]
  - Peripheral swelling [Unknown]
  - Limb discomfort [Unknown]
  - Gait disturbance [Unknown]
